FAERS Safety Report 5765294-9 (Version None)
Quarter: 2008Q2

REPORT INFORMATION
  Report Type: 
  Country: None (occurrence: None)
  Receive Date: 20080611
  Receipt Date: 20080605
  Transmission Date: 20081010
  Serious: Yes (Hospitalization)
  Sender: FDA-Public Use
  Company Number: US-GILEAD-2008-0016201

PATIENT
  Age: 59 Year

DRUGS (15)
  1. LETAIRIS [Suspect]
  2. WARFARIN SODIUM [Concomitant]
     Route: 048
  3. METFORMIN HCL [Concomitant]
     Route: 048
  4. ALBUTEROL [Concomitant]
     Indication: DYSPNOEA
     Route: 055
  5. DILTIAZEM [Concomitant]
     Route: 048
  6. ELIDEL [Concomitant]
     Route: 061
  7. FERROUS GLUCONATE [Concomitant]
     Route: 048
  8. FLUTICASONE/SALMETEROL [Concomitant]
     Route: 055
  9. FUROSEMIDE [Concomitant]
     Route: 048
  10. GABAPENTIN [Concomitant]
     Route: 048
  11. LOSARTAN POTASSIUM [Concomitant]
     Route: 048
  12. OMEPRAZOLE [Concomitant]
     Route: 048
  13. SIMVASTATIN [Concomitant]
     Route: 048
  14. THEOPHYLLINE [Concomitant]
     Route: 048
  15. TIOTROPIUM [Concomitant]
     Route: 055

REACTIONS (3)
  - CARDIAC FAILURE CONGESTIVE [None]
  - FLUID OVERLOAD [None]
  - OEDEMA PERIPHERAL [None]
